FAERS Safety Report 8167301-5 (Version None)
Quarter: 2012Q1

REPORT INFORMATION
  Report Type: 
  Country: None (occurrence: None)
  Receive Date: 20120227
  Receipt Date: 20120221
  Transmission Date: 20120608
  Serious: Yes (Other)
  Sender: FDA-Public Use
  Company Number: US-PFIZER INC-2012046446

PATIENT
  Sex: Male

DRUGS (1)
  1. SUTENT [Suspect]
     Indication: METASTATIC RENAL CELL CARCINOMA
     Dosage: UNK
     Dates: start: 20071101

REACTIONS (9)
  - DIARRHOEA [None]
  - HAEMORRHAGIC DIATHESIS [None]
  - HYPERKERATOSIS [None]
  - PAIN IN EXTREMITY [None]
  - IRRITABILITY [None]
  - STOMATITIS [None]
  - DIZZINESS [None]
  - PRURITUS [None]
  - DEPRESSION [None]
